FAERS Safety Report 15357688 (Version 5)
Quarter: 2020Q2

REPORT INFORMATION
  Report Type: Report from Study
  Country: US (occurrence: US)
  Receive Date: 20180906
  Receipt Date: 20200612
  Transmission Date: 20200713
  Serious: Yes (Hospitalization)
  Sender: FDA-Public Use
  Company Number: US-ACTELION-A-NJ2018-177361

PATIENT
  Age: 66 Year
  Sex: Female
  Weight: 132.88 kg

DRUGS (3)
  1. OPSUMIT [Suspect]
     Active Substance: MACITENTAN
     Indication: PULMONARY ARTERIAL HYPERTENSION
     Dosage: UNK
     Route: 048
     Dates: start: 20180730, end: 20180806
  2. BUMEX [Concomitant]
     Active Substance: BUMETANIDE
     Dosage: UNK, BID
  3. FUROSEMIDE. [Suspect]
     Active Substance: FUROSEMIDE
     Indication: PERIPHERAL SWELLING
     Dosage: 80 MG, UNK
     Route: 042

REACTIONS (21)
  - Peripheral swelling [Unknown]
  - Dizziness [Recovered/Resolved]
  - Blood urea increased [Not Recovered/Not Resolved]
  - Weight increased [Unknown]
  - Fluid overload [Recovered/Resolved with Sequelae]
  - Chills [Recovered/Resolved]
  - Oedema [Unknown]
  - Decreased appetite [Not Recovered/Not Resolved]
  - Hot flush [Recovered/Resolved]
  - Thrombocytopenia [Recovered/Resolved]
  - Blood creatinine increased [Unknown]
  - Pulmonary hypertension [Unknown]
  - Fatigue [Recovered/Resolved]
  - Hypotension [Not Recovered/Not Resolved]
  - Tremor [Recovered/Resolved]
  - Headache [Recovered/Resolved]
  - Acute kidney injury [Unknown]
  - Asthenia [Recovered/Resolved]
  - Hyperkalaemia [Recovered/Resolved]
  - Dyspnoea [Recovered/Resolved with Sequelae]
  - Flushing [Recovered/Resolved]

NARRATIVE: CASE EVENT DATE: 20180806
